FAERS Safety Report 4513240-8 (Version None)
Quarter: 2004Q4

REPORT INFORMATION
  Report Type: 
  Country: None (occurrence: None)
  Receive Date: 20041130
  Receipt Date: 20041116
  Transmission Date: 20050328
  Serious: Yes (Life-Threatening, Hospitalization)
  Sender: FDA-Public Use
  Company Number: DE-MERCK-0411DEU00343

PATIENT
  Age: 62 Year
  Sex: Female

DRUGS (2)
  1. VIOXX [Suspect]
     Indication: HIP ARTHROPLASTY
     Route: 048
     Dates: start: 20030807, end: 20030828
  2. VIOXX [Suspect]
     Indication: PAIN
     Route: 048
     Dates: start: 20030807, end: 20030828

REACTIONS (2)
  - MYOCARDIAL INFARCTION [None]
  - PRESCRIBED OVERDOSE [None]
